FAERS Safety Report 7694146-2 (Version None)
Quarter: 2011Q3

REPORT INFORMATION
  Report Type: 
  Country: None (occurrence: None)
  Receive Date: 20110819
  Receipt Date: 20110817
  Transmission Date: 20111222
  Serious: Yes (Life-Threatening, Hospitalization)
  Sender: FDA-Public Use
  Company Number: US-B.I. PHARMACEUTICALS,INC./RIDGEFIELD-2011-BP-14578BP

PATIENT
  Age: 78 Year
  Sex: Male

DRUGS (10)
  1. PRADAXA [Suspect]
     Indication: ATRIAL FIBRILLATION
     Dosage: 300 MG
     Route: 048
     Dates: start: 20110101, end: 20110321
  2. SOTALOL HCL [Concomitant]
     Dosage: 80 MG
  3. MULTI-VITAMIN [Concomitant]
  4. VITAMIN D [Concomitant]
  5. MOBIC [Concomitant]
  6. ASCORBIC ACID [Concomitant]
  7. CALCIUM CARBONATE [Concomitant]
  8. VITAMIN E [Concomitant]
  9. PRAVACHOL [Concomitant]
     Dosage: 80 MG
  10. ASPIRIN [Concomitant]
     Route: 048

REACTIONS (2)
  - HAEMORRHAGIC STROKE [None]
  - CEREBRAL ISCHAEMIA [None]
